FAERS Safety Report 9005354 (Version 1)
Quarter: 2013Q1

REPORT INFORMATION
  Report Type: Spontaneous
  Country: US (occurrence: US)
  Receive Date: 20130108
  Receipt Date: 20130108
  Transmission Date: 20140127
  Serious: Yes (Death)
  Sender: FDA-Public Use
  Company Number: US-BAYER-2013-001704

PATIENT
  Age: 55 Year
  Sex: Male

DRUGS (6)
  1. DIPHENHYDRAMINE HYDROCHLORIDE [Suspect]
  2. ALPRAZOLAM [Suspect]
  3. METHADONE [Suspect]
  4. OXYCODONE [Suspect]
  5. OLANZAPINE [Suspect]
  6. ANTICONVULSIVE [Suspect]

REACTIONS (3)
  - Toxicity to various agents [Fatal]
  - Respiratory arrest [None]
  - Cardiac arrest [None]
